FAERS Safety Report 10386589 (Version 1)
Quarter: 2014Q3

REPORT INFORMATION
  Report Type: Spontaneous
  Country: US (occurrence: None)
  Receive Date: 20140814
  Receipt Date: 20140814
  Transmission Date: 20150326
  Serious: Yes (Hospitalization)
  Sender: FDA-Public Use
  Company Number: None

PATIENT
  Age: 55 Year
  Sex: Male
  Weight: 113 kg

DRUGS (23)
  1. TACROLIMUS. [Concomitant]
     Active Substance: TACROLIMUS
  2. CATHFLO ACTIVASE [Concomitant]
     Active Substance: ALTEPLASE
  3. ZYPREXA [Concomitant]
     Active Substance: OLANZAPINE
  4. HUMALOG [Concomitant]
     Active Substance: INSULIN LISPRO
  5. GANCICLOVIR [Concomitant]
     Active Substance: GANCICLOVIR
  6. MORPHINE IR [Concomitant]
     Active Substance: MORPHINE
  7. MEPERIDINE [Concomitant]
     Active Substance: MEPERIDINE
  8. LANTUS [Concomitant]
     Active Substance: INSULIN GLARGINE
  9. LEVOFLOXACIN [Concomitant]
     Active Substance: LEVOFLOXACIN
  10. DAPSONE. [Suspect]
     Active Substance: DAPSONE
     Indication: LIVER TRANSPLANT
     Route: 048
     Dates: start: 20140715, end: 20140721
  11. CEFEPIME [Concomitant]
     Active Substance: CEFEPIME\CEFEPIME HYDROCHLORIDE
  12. DEXTROSE. [Concomitant]
     Active Substance: DEXTROSE
  13. SODIUM CHLORIDE. [Concomitant]
     Active Substance: SODIUM CHLORIDE
  14. HALDOL [Concomitant]
     Active Substance: HALOPERIDOL
  15. DAPTOMYCIN [Concomitant]
     Active Substance: DAPTOMYCIN
  16. HUMULIN-R TITRATED [Concomitant]
  17. DAPTOMYCIN [Concomitant]
     Active Substance: DAPTOMYCIN
  18. ALOPRASTADIL TITRATED [Concomitant]
  19. ALBUMIN HUMAN [Concomitant]
     Active Substance: ALBUMIN (HUMAN)
  20. DAPSONE. [Suspect]
     Active Substance: DAPSONE
     Indication: ANTIFUNGAL PROPHYLAXIS
     Route: 048
     Dates: start: 20140715, end: 20140721
  21. MICAFUNGIN [Concomitant]
     Active Substance: MICAFUNGIN
  22. CARMEX [Concomitant]
     Active Substance: CAMPHOR\MENTHOL\PHENOL\POTASSIUM ALUM\SALICYLIC ACID
  23. METHYLPREDNISOLONE [Concomitant]
     Active Substance: METHYLPREDNISOLONE

REACTIONS (3)
  - Leukocytosis [None]
  - Pyrexia [None]
  - Drug hypersensitivity [None]

NARRATIVE: CASE EVENT DATE: 20140721
